FAERS Safety Report 4642319-5 (Version None)
Quarter: 2005Q2

REPORT INFORMATION
  Report Type: 
  Country: None (occurrence: None)
  Receive Date: 20050420
  Receipt Date: 20050404
  Transmission Date: 20051028
  Serious: Yes (Other)
  Sender: FDA-Public Use
  Company Number: 200502917

PATIENT
  Age: 40 Year
  Sex: Male

DRUGS (1)
  1. BOTOX [Suspect]
     Indication: MUSCLE DISORDER
     Dates: start: 20010823, end: 20031101

REACTIONS (3)
  - ASTHENIA [None]
  - MUSCLE ATROPHY [None]
  - MYOCLONUS [None]
